FAERS Safety Report 25351936 (Version 1)
Quarter: 2025Q2

REPORT INFORMATION
  Report Type: Spontaneous
  Country: US (occurrence: US)
  Receive Date: 20250523
  Receipt Date: 20250523
  Transmission Date: 20250717
  Serious: No
  Sender: LEXICON PHARMACEUTICALS
  Company Number: US-LEX-000754

PATIENT
  Age: 75 Year
  Sex: Female

DRUGS (1)
  1. INPEFA [Suspect]
     Active Substance: SOTAGLIFLOZIN
     Indication: Chronic left ventricular failure
     Route: 048
     Dates: start: 20250403, end: 20250421

REACTIONS (4)
  - Visual impairment [Unknown]
  - Headache [Unknown]
  - Confusional state [Unknown]
  - Dizziness [Unknown]
